FAERS Safety Report 10238452 (Version 1)
Quarter: 2014Q2

REPORT INFORMATION
  Report Type: Spontaneous
  Country: US (occurrence: US)
  Receive Date: 20140616
  Receipt Date: 20140616
  Transmission Date: 20141212
  Serious: Yes (Other)
  Sender: FDA-Public Use
  Company Number: US-ROCHE-1418174

PATIENT
  Age: 82 Year
  Sex: Male

DRUGS (1)
  1. ERIVEDGE [Suspect]
     Indication: NEOPLASM
     Route: 048
     Dates: start: 20140115, end: 20140215

REACTIONS (2)
  - Neoplasm [Unknown]
  - Surgery [Unknown]
